FAERS Safety Report 5133030-5 (Version None)
Quarter: 2006Q4

REPORT INFORMATION
  Report Type: 
  Country: None (occurrence: None)
  Receive Date: 20061017
  Receipt Date: 20061002
  Transmission Date: 20070319
  Serious: Yes (Death)
  Sender: FDA-Public Use
  Company Number: SA200610000082

PATIENT
  Age: 66 Year
  Sex: Female

DRUGS (2)
  1. FORTEO [Suspect]
     Indication: DRUG USE FOR UNKNOWN INDICATION
  2. FORTEO [Concomitant]

REACTIONS (1)
  - DEATH [None]
